FAERS Safety Report 20708254 (Version 1)
Quarter: 2022Q2

REPORT INFORMATION
  Report Type: Other
  Country: US (occurrence: None)
  Receive Date: 20220414
  Receipt Date: 20220414
  Transmission Date: 20220721
  Serious: Yes (Hospitalization)
  Sender: FDA-Public Use
  Company Number: US-ROCHE-3074412

PATIENT
  Age: 50 Year
  Sex: Female
  Weight: 68.100 kg

DRUGS (5)
  1. OCREVUS [Suspect]
     Active Substance: OCRELIZUMAB
     Indication: Relapsing-remitting multiple sclerosis
     Dosage: 600 MG EVERY 24 WEEKS?LAST DATE OF TREATMENT: 23/SEP/2021
     Route: 042
  2. OCREVUS [Suspect]
     Active Substance: OCRELIZUMAB
     Dosage: 300 MG FOLLOWED BY 300 MG 2 WEEKS AFTER
     Route: 042
  3. BACLOFEN [Concomitant]
     Active Substance: BACLOFEN
  4. ZANAFLEX [Concomitant]
     Active Substance: TIZANIDINE HYDROCHLORIDE
  5. OXYBUTYNIN [Concomitant]
     Active Substance: OXYBUTYNIN

REACTIONS (3)
  - Sepsis [Unknown]
  - Urinary tract infection [Recovered/Resolved]
  - Muscle spasticity [Not Recovered/Not Resolved]

NARRATIVE: CASE EVENT DATE: 20210601
